FAERS Safety Report 16438103 (Version 1)
Quarter: 2019Q2

REPORT INFORMATION
  Report Type: Spontaneous
  Country: SE (occurrence: SE)
  Receive Date: 20190617
  Receipt Date: 20190617
  Transmission Date: 20190711
  Serious: Yes (Other)
  Sender: FDA-Public Use
  Company Number: SE-UNICHEM PHARMACEUTICALS (USA) INC-UCM201906-000215

PATIENT
  Age: 50 Year
  Sex: Female

DRUGS (3)
  1. ZOPICLONE [Suspect]
     Active Substance: ZOPICLONE
  2. METHYLPHENIDATE. [Suspect]
     Active Substance: METHYLPHENIDATE
  3. QUETIAPINE. [Suspect]
     Active Substance: QUETIAPINE
     Indication: PRODUCT USED FOR UNKNOWN INDICATION
     Dosage: INGESTED QUETIAPINE 18 G (90 TABLETS * 200 MG)

REACTIONS (7)
  - Overdose [Unknown]
  - Nystagmus [Unknown]
  - Depressed level of consciousness [Unknown]
  - Muscle twitching [Unknown]
  - Tachycardia [Unknown]
  - Bezoar [Unknown]
  - Pneumonia aspiration [Unknown]
